FAERS Safety Report 8572800-8 (Version None)
Quarter: 2012Q3

REPORT INFORMATION
  Report Type: 
  Country: None (occurrence: None)
  Receive Date: 20120806
  Receipt Date: 20120724
  Transmission Date: 20120928
  Serious: Yes (Other)
  Sender: FDA-Public Use
  Company Number: AU-ROCHE-1097435

PATIENT
  Sex: Female

DRUGS (4)
  1. GEMZAR [Concomitant]
  2. ABRAXANE [Concomitant]
  3. NAVELBINE [Concomitant]
  4. HERCEPTIN [Suspect]
     Indication: PRODUCT USED FOR UNKNOWN INDICATION
     Route: 065

REACTIONS (1)
  - METASTASES TO LIVER [None]
